FAERS Safety Report 13924595 (Version 1)
Quarter: 2017Q3

REPORT INFORMATION
  Report Type: Spontaneous
  Country: US (occurrence: US)
  Receive Date: 20170831
  Receipt Date: 20170831
  Transmission Date: 20171127
  Serious: No
  Sender: FDA-Public Use
  Company Number: US-009507513-1708USA013367

PATIENT
  Sex: Female

DRUGS (2)
  1. ZOSTAVAX [Suspect]
     Active Substance: VARICELLA-ZOSTER VIRUS STRAIN OKA/MERCK LIVE ANTIGEN
     Indication: IMMUNISATION
  2. STERILE DILUENT [Suspect]
     Active Substance: WATER
     Indication: IMMUNISATION
     Dosage: UNK, ONCE

REACTIONS (2)
  - Incorrect route of drug administration [Unknown]
  - Injection site vesicles [Unknown]
